FAERS Safety Report 21520959 (Version 2)
Quarter: 2022Q4

REPORT INFORMATION
  Report Type: Spontaneous
  Country: US (occurrence: US)
  Receive Date: 20221028
  Receipt Date: 20221205
  Transmission Date: 20230113
  Serious: No
  Sender: FDA-Public Use
  Company Number: US-PFIZER INC-PV202200092250

PATIENT

DRUGS (2)
  1. ZIRABEV [Suspect]
     Active Substance: BEVACIZUMAB-BVZR
     Dosage: 400 MG (400 MG X 3, NDC NUMBER 0069-0342-01))
  2. ZIRABEV [Suspect]
     Active Substance: BEVACIZUMAB-BVZR
     Dosage: 100 MG (100 MG X1, NDC NUMBER 0069-0315-01))

REACTIONS (2)
  - Dyspnoea [Unknown]
  - Chest pain [Unknown]
